FAERS Safety Report 7002125-3 (Version None)
Quarter: 2010Q3

REPORT INFORMATION
  Report Type: 
  Country: None (occurrence: None)
  Receive Date: 20100920
  Receipt Date: 20100301
  Transmission Date: 20110219
  Serious: Yes (Other)
  Sender: FDA-Public Use
  Company Number: US-ASTRAZENECA-2009UW20620

PATIENT
  Sex: Female

DRUGS (5)
  1. SEROQUEL [Suspect]
     Route: 048
     Dates: start: 20060418
  2. RISPERDAL [Concomitant]
     Dosage: 1 TO 2 MG DAILY
     Route: 048
     Dates: start: 20060315
  3. DEPAKOTE ER [Concomitant]
     Route: 048
     Dates: start: 20060315
  4. LITHIUM CARBONATE [Concomitant]
     Dosage: 300 TO 600 MG
     Route: 048
     Dates: start: 20060419
  5. HYDROXYZINE PAM [Concomitant]
     Dates: start: 20060516

REACTIONS (3)
  - DIABETES MELLITUS [None]
  - KETOACIDOSIS [None]
  - PANCREATITIS [None]
